FAERS Safety Report 19276570 (Version 1)
Quarter: 2021Q2

REPORT INFORMATION
  Report Type: Report from Study
  Country: US (occurrence: US)
  Receive Date: 20210519
  Receipt Date: 20210519
  Transmission Date: 20210717
  Serious: Yes (Death, Life-Threatening, Hospitalization, Other)
  Sender: FDA-Public Use
  Company Number: US-PFIZER INC-2016582670

PATIENT
  Age: 72 Year
  Sex: Male
  Weight: 87 kg

DRUGS (7)
  1. HYDROXYUREA. [Concomitant]
     Active Substance: HYDROXYUREA
     Indication: NEOPLASM
     Dosage: 500 MG, DAILY
     Route: 048
     Dates: start: 20161116, end: 20161205
  2. POTASSIUM CHLORIDE. [Concomitant]
     Active Substance: POTASSIUM CHLORIDE
     Indication: SUPPLEMENTATION THERAPY
     Dosage: 20 MCG, TWICE DAILY
     Route: 048
     Dates: start: 20161130
  3. RASBURICASE [Concomitant]
     Active Substance: RASBURICASE
     Indication: BLOOD URIC ACID INCREASED
     Dosage: 3 MG, ONCE
     Route: 042
     Dates: start: 20161109
  4. MAGNESIUM OXIDE. [Concomitant]
     Active Substance: MAGNESIUM OXIDE
     Indication: SUPPLEMENTATION THERAPY
     Dosage: 500 MG, TWICE DAILY
     Route: 048
     Dates: start: 20161205
  5. TYLENOL [Concomitant]
     Active Substance: ACETAMINOPHEN
     Indication: ANTIPYRESIS
     Dosage: 325 MG, EVERY 6 HOURS PRN
     Route: 048
     Dates: start: 20161109
  6. MYLOTARG [Suspect]
     Active Substance: GEMTUZUMAB OZOGAMICIN
     Indication: ACUTE MYELOID LEUKAEMIA
     Dosage: 6 MG (3 MG/M2/DOSE)
     Route: 042
     Dates: start: 20161206, end: 20161206
  7. ALLOPURINOL. [Concomitant]
     Active Substance: ALLOPURINOL
     Indication: BLOOD URIC ACID INCREASED
     Dosage: 300 MG, DAILY
     Route: 048
     Dates: start: 20161116, end: 20161119

REACTIONS (9)
  - Sepsis [Fatal]
  - Febrile neutropenia [Fatal]
  - Platelet count decreased [Fatal]
  - Respiratory failure [Fatal]
  - Diarrhoea [Fatal]
  - Pneumonia [Fatal]
  - Acute kidney injury [Fatal]
  - Dehydration [Fatal]
  - Tumour lysis syndrome [Fatal]

NARRATIVE: CASE EVENT DATE: 20161209
